FAERS Safety Report 5463258-6 (Version None)
Quarter: 2007Q3

REPORT INFORMATION
  Report Type: 
  Country: None (occurrence: None)
  Receive Date: 20070920
  Receipt Date: 20070903
  Transmission Date: 20080115
  Serious: Yes (Disabling)
  Sender: FDA-Public Use
  Company Number: FR-GILEAD-2007-0012374

PATIENT
  Sex: Male
  Weight: 73 kg

DRUGS (8)
  1. VIREAD [Suspect]
     Indication: HIV INFECTION
     Route: 048
     Dates: start: 20021007, end: 20051202
  2. VIREAD [Suspect]
     Indication: HEPATITIS B VIRUS
     Dates: start: 20070115
  3. HEPSERA [Suspect]
     Dates: start: 20060501, end: 20061201
  4. EPIVIR [Concomitant]
     Indication: HIV INFECTION
     Route: 048
     Dates: start: 19990426
  5. RITONAVIR [Concomitant]
     Indication: HIV INFECTION
     Route: 048
     Dates: start: 20021007, end: 20060530
  6. DARUNAVIR [Concomitant]
  7. ETRAVIRINE [Concomitant]
  8. ENFUVIRTIDE [Concomitant]

REACTIONS (4)
  - DIABETES MELLITUS [None]
  - DRUG INEFFECTIVE [None]
  - FANCONI SYNDROME ACQUIRED [None]
  - RENAL TUBULAR DISORDER [None]
